FAERS Safety Report 20030429 (Version 1)
Quarter: 2021Q4

REPORT INFORMATION
  Report Type: Spontaneous
  Country: CN (occurrence: CN)
  Receive Date: 20211103
  Receipt Date: 20211103
  Transmission Date: 20220303
  Serious: Yes (Other)
  Sender: FDA-Public Use
  Company Number: CN-PFIZER INC-202101430138

PATIENT
  Age: 37 Year
  Sex: Female
  Weight: 45 kg

DRUGS (1)
  1. METHYLPREDNISOLONE [Suspect]
     Active Substance: METHYLPREDNISOLONE
     Indication: Thyroiditis acute
     Dosage: 12 MG, 1X/DAY
     Route: 048
     Dates: start: 20211011, end: 20211021

REACTIONS (2)
  - Palpitations [Unknown]
  - Insomnia [Unknown]

NARRATIVE: CASE EVENT DATE: 20211011
